FAERS Safety Report 8720654 (Version 2)
Quarter: 2012Q4

REPORT INFORMATION
  Report Type: 
  Country: ZA (occurrence: ZA)
  Receive Date: 20120813
  Receipt Date: 20120904
  Transmission Date: 20130627
  Serious: Yes (Hospitalization)
  Sender: FDA-Public Use
  Company Number: ZA-ELI_LILLY_AND_COMPANY-ZA201208002381

PATIENT
  Age: 64 Year
  Sex: Male

DRUGS (6)
  1. HUMALOG [Suspect]
     Indication: TYPE 2 DIABETES MELLITUS
     Dosage: UNK
     Dates: start: 201103
  2. METFORMIN [Concomitant]
     Dosage: 850 mg, tid
  3. ASPIRIN [Concomitant]
     Dosage: 100 mg, unknown
  4. MICHOL [Concomitant]
     Dosage: 20 mg, unknown
     Route: 048
  5. TWYNSTA [Concomitant]
     Dosage: 1 DF, unknown
  6. CARLOC [Concomitant]
     Dosage: 25 mg, bid

REACTIONS (2)
  - Arteriogram coronary [Recovered/Resolved]
  - Diabetes mellitus inadequate control [Recovered/Resolved]
